FAERS Safety Report 20937039 (Version 1)
Quarter: 2022Q2

REPORT INFORMATION
  Report Type: Spontaneous
  Country: US (occurrence: None)
  Receive Date: 20220609
  Receipt Date: 20220609
  Transmission Date: 20220721
  Serious: No
  Sender: FDA-Public Use
  Company Number: US-ROCHE-2896849

PATIENT
  Age: 43 Year
  Sex: Female

DRUGS (1)
  1. ACTEMRA [Suspect]
     Active Substance: TOCILIZUMAB
     Indication: Rheumatoid arthritis
     Dosage: ACTEMRA PFS
     Route: 058
     Dates: start: 202106, end: 202108

REACTIONS (2)
  - Dermatitis allergic [Unknown]
  - Pruritus [Unknown]

NARRATIVE: CASE EVENT DATE: 20210701
